FAERS Safety Report 9765132 (Version 1)
Quarter: 2013Q4

REPORT INFORMATION
  Report Type: Spontaneous
  Country: US (occurrence: None)
  Receive Date: 20131213
  Receipt Date: 20131213
  Transmission Date: 20140711
  Serious: Yes (Other)
  Sender: FDA-Public Use
  Company Number: 2013SA032526

PATIENT
  Age: 42 Year
  Sex: Female

DRUGS (2)
  1. ICY HOT XL BACK AND LARGE AREAS [Suspect]
     Indication: BACK PAIN
     Dosage: 1 DOSAGE FORM; UNKNOWN; TOPICAL
     Route: 061
  2. NAPROXEN [Concomitant]

REACTIONS (7)
  - Back pain [None]
  - Skin haemorrhage [None]
  - Pain [None]
  - Product quality issue [None]
  - Burning sensation [None]
  - Scratch [None]
  - Skin exfoliation [None]
